FAERS Safety Report 5405535-0 (Version None)
Quarter: 2007Q3

REPORT INFORMATION
  Report Type: 
  Country: None (occurrence: None)
  Receive Date: 20070803
  Receipt Date: 20070726
  Transmission Date: 20080115
  Serious: Yes (Death)
  Sender: FDA-Public Use
  Company Number: KW-MERCK-0707USA04503

PATIENT
  Sex: Male
  Weight: 3 kg

DRUGS (3)
  1. CANCIDAS [Suspect]
     Indication: CANDIDIASIS
     Route: 065
  2. AMPHOTERICIN B AND CHOLESTEROL AND DISTEAROYLPHOSPHATIDYLGLYCEROL AND [Concomitant]
     Indication: CANDIDIASIS
     Route: 065
  3. FLUCONAZOLE [Concomitant]
     Indication: CANDIDIASIS
     Route: 065

REACTIONS (1)
  - CANDIDIASIS [None]
